FAERS Safety Report 4790371-9 (Version None)
Quarter: 2005Q4

REPORT INFORMATION
  Report Type: 
  Country: None (occurrence: None)
  Receive Date: 20051005
  Receipt Date: 20050926
  Transmission Date: 20060501
  Serious: Yes (Hospitalization)
  Sender: FDA-Public Use
  Company Number: 2005-09-1544

PATIENT
  Age: 63 Year
  Sex: Male
  Weight: 112.4921 kg

DRUGS (11)
  1. INTEGRILIN [Suspect]
     Indication: ACUTE CORONARY SYNDROME
     Dosage: 2 U/KG/MIN INTRAVENOUS; 1 U/KG/MIN INTRAVENOUS
     Route: 042
     Dates: start: 20050411, end: 20050414
  2. ANGIOMAX [Suspect]
     Indication: ACUTE CORONARY SYNDROME
     Dosage: 0.1MG/KG INTRAVENOUS; 6ML/HR INTRAVENOUS
     Route: 042
     Dates: start: 20050411, end: 20050411
  3. ANGIOMAX [Suspect]
     Indication: ACUTE CORONARY SYNDROME
     Dosage: 0.1MG/KG INTRAVENOUS; 6ML/HR INTRAVENOUS
     Route: 042
     Dates: start: 20050411, end: 20050414
  4. DOXAZOSIN MESYLATE [Concomitant]
  5. INDAPAMIDE [Concomitant]
  6. SIMVASTATIN [Concomitant]
  7. FUROSEMIDE [Concomitant]
  8. LEVOFLOXACIN [Concomitant]
  9. ZETIA [Concomitant]
  10. DILTIAZEM [Concomitant]
  11. GLIMEPIRIDE [Concomitant]

REACTIONS (1)
  - RENAL FAILURE [None]
